FAERS Safety Report 4906217-1 (Version None)
Quarter: 2006Q1

REPORT INFORMATION
  Report Type: 
  Country: None (occurrence: None)
  Receive Date: 20060207
  Receipt Date: 20060126
  Transmission Date: 20060701
  Serious: Yes (Death, Other)
  Sender: FDA-Public Use
  Company Number: 2006003237

PATIENT
  Age: 58 Year
  Sex: Male
  Weight: 56 kg

DRUGS (11)
  1. NORVASC [Suspect]
     Indication: HYPERTENSION
     Dosage: SEE IMAGE
     Route: 048
     Dates: start: 20050428, end: 20050706
  2. NORVASC [Suspect]
     Indication: HYPERTENSION
     Dosage: SEE IMAGE
     Route: 048
     Dates: start: 20050710, end: 20051217
  3. CARDENALIN (DOXAZOSIN) [Suspect]
     Indication: HYPERTENSION
     Dosage: 5 MG (2 IN 1 D), ORAL
     Route: 048
     Dates: end: 20050706
  4. CARDENALIN (DOXAZOSIN) [Suspect]
     Indication: HYPERTENSION
     Dosage: 5 MG (2 IN 1 D), ORAL
     Route: 048
     Dates: start: 20050712, end: 20051217
  5. VALSARTAN [Suspect]
     Indication: HYPERTENSION
     Dosage: 160 MG (2 IN 1 D), ORAL
     Route: 048
     Dates: end: 20050706
  6. VALSARTAN [Suspect]
     Indication: HYPERTENSION
     Dosage: 160 MG (2 IN 1 D), ORAL
     Route: 048
     Dates: start: 20050710, end: 20051217
  7. LASIX [Concomitant]
  8. MELLERILL ^SANDOZ^ (THIORIDAZINE HYDROCHLORIDE) [Concomitant]
  9. HALOPERIDOL [Concomitant]
  10. AKINETON [Concomitant]
  11. HALCION [Concomitant]

REACTIONS (12)
  - ASCITES [None]
  - DISSEMINATED INTRAVASCULAR COAGULATION [None]
  - GENERALISED OEDEMA [None]
  - HYPOALBUMINAEMIA [None]
  - HYPOTHERMIA [None]
  - OEDEMA PERIPHERAL [None]
  - PLATELET COUNT DECREASED [None]
  - PNEUMONIA [None]
  - PROTEIN TOTAL DECREASED [None]
  - PROTEINURIA [None]
  - SEPTIC SHOCK [None]
  - SKIN ULCER [None]
